FAERS Safety Report 8778944 (Version 1)
Quarter: 2012Q4

REPORT INFORMATION
  Report Type: 
  Country: CA (occurrence: CA)
  Receive Date: 20120912
  Receipt Date: 20120912
  Transmission Date: 20130627
  Serious: Yes (Hospitalization)
  Sender: FDA-Public Use
  Company Number: CA-B.I. PHARMACEUTICALS,INC./RIDGEFIELD-2012-CN-01832CN

PATIENT
  Age: 83 Year
  Sex: Male

DRUGS (1)
  1. PRADAX [Suspect]
     Dates: start: 20120522

REACTIONS (1)
  - Cerebrovascular accident [Recovered/Resolved]
